FAERS Safety Report 5409258-3 (Version None)
Quarter: 2007Q3

REPORT INFORMATION
  Report Type: 
  Country: None (occurrence: None)
  Receive Date: 20070809
  Receipt Date: 20070802
  Transmission Date: 20080115
  Serious: Yes (Other)
  Sender: FDA-Public Use
  Company Number: PHBS2007NZ12919

PATIENT
  Age: 44 Year
  Sex: Male

DRUGS (8)
  1. METOPROLOL SUCCINATE [Suspect]
     Indication: SINUS TACHYCARDIA
     Dosage: 47.5 MG, UNK
  2. METOPROLOL SUCCINATE [Suspect]
     Dosage: 95 MG, UNK
  3. METHADONE HCL [Concomitant]
     Route: 048
  4. MEROPENEM [Concomitant]
     Route: 042
  5. PARACETAMOL [Concomitant]
  6. AMITRIPTYLINE HCL [Concomitant]
  7. ONDANSETRON [Concomitant]
  8. OMEPRAZOLE [Concomitant]

REACTIONS (8)
  - ANAEMIA [None]
  - HAEMOGLOBIN DECREASED [None]
  - HYPERKALAEMIA [None]
  - LEUKOCYTOSIS [None]
  - LIVER FUNCTION TEST ABNORMAL [None]
  - RESPIRATORY ACIDOSIS [None]
  - RESPIRATORY FAILURE [None]
  - WHITE BLOOD CELL COUNT INCREASED [None]
